FAERS Safety Report 9234297 (Version 1)
Quarter: 2013Q2

REPORT INFORMATION
  Report Type: Spontaneous
  Country: US (occurrence: US)
  Receive Date: 20130416
  Receipt Date: 20130416
  Transmission Date: 20140414
  Serious: Yes (Hospitalization)
  Sender: FDA-Public Use
  Company Number: US-MYLANLABS-2013S1007584

PATIENT
  Age: 62 Year
  Sex: Male

DRUGS (3)
  1. CYCLOBENZAPRINE HYDROCHLORIDE [Suspect]
     Indication: BACK PAIN
     Route: 048
     Dates: start: 20130325, end: 20130325
  2. HYPERTENSION MEDICATION [Concomitant]
     Indication: BLOOD PRESSURE INCREASED
  3. CHOLESTEROL MEDICATION [Concomitant]
     Indication: BLOOD CHOLESTEROL INCREASED

REACTIONS (5)
  - Mental status changes [Recovered/Resolved]
  - Depressed level of consciousness [Recovered/Resolved]
  - Lethargy [Recovered/Resolved]
  - Delusion [Recovered/Resolved]
  - Infection [Recovered/Resolved]
